FAERS Safety Report 8204601-4 (Version None)
Quarter: 2012Q1

REPORT INFORMATION
  Report Type: 
  Country: None (occurrence: None)
  Receive Date: 20120313
  Receipt Date: 20120305
  Transmission Date: 20120608
  Serious: Yes (Other)
  Sender: FDA-Public Use
  Company Number: US-JNJFOC-20120303655

PATIENT
  Sex: Female

DRUGS (6)
  1. ENBREL [Concomitant]
     Indication: RHEUMATOID ARTHRITIS
     Route: 065
  2. VITAMINS NOS [Concomitant]
     Indication: PRODUCT USED FOR UNKNOWN INDICATION
     Route: 065
  3. SUDAFED 12 HOUR [Suspect]
     Route: 048
  4. SUDAFED 12 HOUR [Suspect]
     Indication: MULTIPLE ALLERGIES
     Route: 048
  5. METHOTREXATE [Concomitant]
     Indication: RHEUMATOID ARTHRITIS
     Route: 065
  6. THYROID TAB [Suspect]
     Indication: THYROID DISORDER
     Dosage: APPROXIMATELY 40 YEARS AGO
     Route: 048
     Dates: start: 19720101, end: 20110101

REACTIONS (2)
  - HEART RATE INCREASED [None]
  - ATRIAL FIBRILLATION [None]
